FAERS Safety Report 9824699 (Version 2)
Quarter: 2015Q4

REPORT INFORMATION
  Report Type: Report from Study
  Country: US (occurrence: US)
  Receive Date: 20140117
  Receipt Date: 20151113
  Transmission Date: 20160305
  Serious: Yes (Other)
  Sender: FDA-Public Use
  Company Number: US-ROCHE-1329131

PATIENT
  Sex: Male
  Weight: 72.64 kg

DRUGS (19)
  1. LUCENTIS [Suspect]
     Active Substance: RANIBIZUMAB
     Dosage: 0.05 ML OF 10MG/ML
     Route: 050
  2. BETADINE [Concomitant]
     Active Substance: POVIDONE-IODINE
  3. TOPIRAMATE. [Concomitant]
     Active Substance: TOPIRAMATE
  4. VITAMIN D3 [Concomitant]
     Active Substance: CHOLECALCIFEROL
  5. ALIGN [Concomitant]
     Active Substance: BIFIDOBACTERIUM LONGUM SUBSP. INFANTIS
  6. LAMOTRIGINE. [Concomitant]
     Active Substance: LAMOTRIGINE
  7. PHENYLEPHRINE [Concomitant]
     Active Substance: PHENYLEPHRINE\PHENYLEPHRINE HYDROCHLORIDE
     Dosage: OU
     Route: 065
  8. TROPICAMIDE. [Concomitant]
     Active Substance: TROPICAMIDE
     Dosage: OU
     Route: 065
  9. QUIXIN [Concomitant]
     Active Substance: LEVOFLOXACIN
     Dosage: 1 DROP 20 MINUTES BEFORE PROCEDURE
     Route: 047
  10. DOCUSATE SODIUM. [Concomitant]
     Active Substance: DOCUSATE SODIUM
  11. NEXIUM [Concomitant]
     Active Substance: ESOMEPRAZOLE MAGNESIUM
  12. AVASTIN [Suspect]
     Active Substance: BEVACIZUMAB
     Indication: NEOVASCULAR AGE-RELATED MACULAR DEGENERATION
     Route: 065
     Dates: start: 20091012
  13. LEXAPRO [Concomitant]
     Active Substance: ESCITALOPRAM OXALATE
  14. LUCENTIS [Suspect]
     Active Substance: RANIBIZUMAB
     Indication: NEOVASCULAR AGE-RELATED MACULAR DEGENERATION
     Route: 050
     Dates: start: 20091221
  15. ZYMAR [Concomitant]
     Active Substance: GATIFLOXACIN
     Dosage: 1 DROP, OU
     Route: 047
  16. LIDOCAINE. [Concomitant]
     Active Substance: LIDOCAINE
     Dosage: 15 MINS WITH Q-TIP
     Route: 061
  17. PROPARACAINE [Concomitant]
     Active Substance: PROPARACAINE
     Dosage: OU
     Route: 065
  18. GABAPENTIN. [Concomitant]
     Active Substance: GABAPENTIN
  19. SEROQUEL [Concomitant]
     Active Substance: QUETIAPINE FUMARATE

REACTIONS (10)
  - Depression [Unknown]
  - Macular degeneration [Unknown]
  - Retinal scar [Unknown]
  - Asthenia [Unknown]
  - Coordination abnormal [Unknown]
  - Memory impairment [Unknown]
  - Eye haemorrhage [Unknown]
  - Macular oedema [Unknown]
  - Upper respiratory tract congestion [Unknown]
  - Headache [Unknown]
